FAERS Safety Report 5888813-0 (Version None)
Quarter: 2008Q3

REPORT INFORMATION
  Report Type: 
  Country: None (occurrence: None)
  Receive Date: 20080916
  Receipt Date: 20080901
  Transmission Date: 20090109
  Serious: Yes (Hospitalization)
  Sender: FDA-Public Use
  Company Number: 2008S1015921

PATIENT
  Age: 1 Hour

DRUGS (3)
  1. FLUOXETINE [Suspect]
     Indication: DEPRESSION
     Dosage: 20 MG; DAILY TRANSPLACENTAL
     Route: 064
     Dates: start: 20070101
  2. FLUOXETINE [Suspect]
     Indication: DEPRESSION
     Dosage: 20 MG; DAILY TRANSPLACENTAL
     Route: 064
     Dates: start: 20070101
  3. SYTRON (SODIUM FEREDETATE) [Concomitant]

REACTIONS (5)
  - DRUG EXPOSURE VIA BREAST MILK [None]
  - IRON DEFICIENCY ANAEMIA [None]
  - MATERNAL DRUGS AFFECTING FOETUS [None]
  - SMALL FOR DATES BABY [None]
  - WEIGHT GAIN POOR [None]
